FAERS Safety Report 7028171-1 (Version None)
Quarter: 2010Q4

REPORT INFORMATION
  Report Type: 
  Country: None (occurrence: None)
  Receive Date: 20101005
  Receipt Date: 20101004
  Transmission Date: 20110411
  Serious: Yes (Disabling)
  Sender: FDA-Public Use
  Company Number: GB-BRISTOL-MYERS SQUIBB COMPANY-15251713

PATIENT
  Age: 43 Year
  Sex: Female
  Weight: 60 kg

DRUGS (1)
  1. KENALOG [Suspect]
     Indication: SEASONAL ALLERGY
     Dosage: VIAL
     Route: 030
     Dates: start: 20100621

REACTIONS (2)
  - MUSCLE ATROPHY [None]
  - PERIARTHRITIS [None]
